FAERS Safety Report 21198771 (Version 2)
Quarter: 2022Q3

REPORT INFORMATION
  Report Type: Spontaneous
  Country: TN (occurrence: TN)
  Receive Date: 20220811
  Receipt Date: 20220815
  Transmission Date: 20221027
  Serious: Yes (Other)
  Sender: FDA-Public Use
  Company Number: TN-MLMSERVICE-20220802-3705888-1

PATIENT
  Age: 17 Year
  Sex: Female

DRUGS (5)
  1. DEXAMETHASONE [Suspect]
     Active Substance: DEXAMETHASONE
     Indication: B precursor type acute leukaemia
     Route: 065
     Dates: start: 2021, end: 2021
  2. METHOTREXATE [Suspect]
     Active Substance: METHOTREXATE
     Indication: B precursor type acute leukaemia
     Dosage: HIGH-DOSE (5 G/M2)
     Route: 042
     Dates: start: 2021, end: 2021
  3. VINCRISTINE [Concomitant]
     Active Substance: VINCRISTINE
     Indication: B precursor type acute leukaemia
     Dates: start: 2021, end: 2021
  4. SODIUM BICARBONATE [Concomitant]
     Active Substance: SODIUM BICARBONATE
     Indication: Hypervolaemia
     Dosage: 1 L/M2
     Dates: start: 2021
  5. SODIUM CHLORIDE [Concomitant]
     Active Substance: SODIUM CHLORIDE
     Indication: Hypervolaemia
     Dosage: 1.5 L/M2
     Dates: start: 2021

REACTIONS (5)
  - Cytopenia [Recovering/Resolving]
  - Condition aggravated [Recovering/Resolving]
  - Hypersensitivity pneumonitis [Recovered/Resolved]
  - Chemotherapeutic drug level above therapeutic [Recovered/Resolved]
  - Renal failure [Recovered/Resolved]

NARRATIVE: CASE EVENT DATE: 20210101
